FAERS Safety Report 24417698 (Version 3)
Quarter: 2025Q1

REPORT INFORMATION
  Report Type: Report from Study
  Country: MX (occurrence: MX)
  Receive Date: 20241009
  Receipt Date: 20250318
  Transmission Date: 20250408
  Serious: Yes (Other)
  Sender: TAKEDA
  Company Number: MX-TAKEDA-2024TUS094085

PATIENT
  Age: 50 Year
  Sex: Male

DRUGS (3)
  1. VEDOLIZUMAB [Suspect]
     Active Substance: VEDOLIZUMAB
     Indication: Crohn^s disease
  2. VEDOLIZUMAB [Suspect]
     Active Substance: VEDOLIZUMAB
     Dosage: 300 MILLIGRAM, Q4WEEKS
     Dates: start: 202410
  3. PREDNISONE [Concomitant]
     Active Substance: PREDNISONE

REACTIONS (11)
  - Deep vein thrombosis [Unknown]
  - Opportunistic infection [Unknown]
  - Decreased immune responsiveness [Not Recovered/Not Resolved]
  - Tongue ulceration [Not Recovered/Not Resolved]
  - Product availability issue [Unknown]
  - Capillary fragility [Not Recovered/Not Resolved]
  - Vasculitis [Unknown]
  - Swelling face [Unknown]
  - Generalised oedema [Unknown]
  - Catheter site injury [Unknown]
  - Poor venous access [Not Recovered/Not Resolved]

NARRATIVE: CASE EVENT DATE: 20240913
